FAERS Safety Report 4798345-9 (Version None)
Quarter: 2005Q4

REPORT INFORMATION
  Report Type: 
  Country: None (occurrence: None)
  Receive Date: 20051014
  Receipt Date: 20050906
  Transmission Date: 20060501
  Serious: Yes (Other)
  Sender: FDA-Public Use
  Company Number: CA-NOVOPROD-246784

PATIENT
  Age: 65 Year
  Sex: Male
  Weight: 80 kg

DRUGS (1)
  1. NIASTASE [Suspect]
     Indication: CEREBELLAR HAEMORRHAGE
     Dosage: 40 UG/KG, UNK
     Dates: start: 20050905

REACTIONS (2)
  - ACUTE MYOCARDIAL INFARCTION [None]
  - TROPONIN INCREASED [None]
